FAERS Safety Report 5704815-9 (Version None)
Quarter: 2008Q2

REPORT INFORMATION
  Report Type: 
  Country: None (occurrence: None)
  Receive Date: 20080414
  Receipt Date: 20080408
  Transmission Date: 20081010
  Serious: Yes (Hospitalization)
  Sender: FDA-Public Use
  Company Number: FR-AVENTIS-200811296FR

PATIENT
  Age: 68 Year
  Sex: Male

DRUGS (8)
  1. TAXOTERE [Suspect]
     Route: 042
     Dates: start: 20071120, end: 20080104
  2. CISPLATIN [Suspect]
     Route: 042
     Dates: start: 20071120, end: 20080104
  3. FLUOROURACIL [Suspect]
     Dates: start: 20071120, end: 20080107
  4. DIAMICRON [Concomitant]
  5. GLIMEPIRIDE [Concomitant]
  6. ATORVASTATIN CALCIUM [Concomitant]
     Indication: HYPERCHOLESTEROLAEMIA
  7. TENORDATE [Concomitant]
  8. KARDEGIC                           /00002703/ [Concomitant]
     Indication: DRUG USE FOR UNKNOWN INDICATION

REACTIONS (1)
  - RENAL FAILURE ACUTE [None]
